FAERS Safety Report 6358204-7 (Version None)
Quarter: 2009Q3

REPORT INFORMATION
  Report Type: 
  Country: None (occurrence: None)
  Receive Date: 20090911
  Receipt Date: 20090828
  Transmission Date: 20100115
  Serious: Yes (Other)
  Sender: FDA-Public Use
  Company Number: ADR19422009

PATIENT
  Age: 71 Year
  Sex: Male

DRUGS (3)
  1. AMLODIPINE [Suspect]
     Indication: HYPERTENSION
     Dosage: ORAL
     Route: 048
     Dates: start: 20080201
  2. ASPIRIN [Concomitant]
  3. RAMIPRIL [Concomitant]

REACTIONS (4)
  - ANGER [None]
  - FEELING HOT [None]
  - INSOMNIA [None]
  - PRURITUS GENERALISED [None]
